FAERS Safety Report 9108846 (Version 1)
Quarter: 2013Q1

REPORT INFORMATION
  Report Type: Report from Study
  Country: DE (occurrence: DE)
  Receive Date: 20130222
  Receipt Date: 20130222
  Transmission Date: 20140127
  Serious: Yes (Hospitalization)
  Sender: FDA-Public Use
  Company Number: DE-UCBSA-078821

PATIENT
  Age: 45 Year
  Sex: Male

DRUGS (9)
  1. VIMPAT [Suspect]
     Indication: PARTIAL SEIZURES
     Dosage: DAILY DOSE: 50 MG
     Dates: start: 20090619, end: 2009
  2. VIMPAT [Suspect]
     Indication: PARTIAL SEIZURES
     Dosage: DAILY DOSE: 150 MG
     Dates: start: 2009, end: 20091009
  3. LAMOTRIGINE [Concomitant]
     Indication: EPILEPSY
     Dosage: DAILY DOSE: 500 MG
  4. LAMOTRIGINE [Concomitant]
     Indication: EPILEPSY
     Dosage: DAILY DOSE: 400 MG
  5. TOPIRAMATE [Concomitant]
     Indication: EPILEPSY
     Dosage: DAILY DOSE: 300 MG
  6. TOPIRAMATE [Concomitant]
     Indication: EPILEPSY
     Dosage: DAILY DOSE: 200 MG
  7. CLOBAZAM [Concomitant]
     Indication: EPILEPSY
     Dosage: DAILY DOSE: 5 MG
  8. CLOBAZAM [Concomitant]
     Indication: EPILEPSY
     Dosage: DAILY DOSE: 5 MG
  9. VALPROATE [Concomitant]
     Indication: EPILEPSY
     Dosage: DAILY DOSE: 2000 MG/DAY

REACTIONS (2)
  - Epilepsy [Unknown]
  - Drug ineffective [Recovered/Resolved]
